FAERS Safety Report 25518582 (Version 1)
Quarter: 2025Q3

REPORT INFORMATION
  Report Type: Spontaneous
  Country: US (occurrence: US)
  Receive Date: 20250704
  Receipt Date: 20250704
  Transmission Date: 20251020
  Serious: No
  Sender: SUNOVION
  Company Number: US-SMPA-2025SPA007368AA

PATIENT

DRUGS (1)
  1. GEMTESA [Suspect]
     Active Substance: VIBEGRON
     Indication: Hypertonic bladder
     Dosage: 0.5 DF, QD (TAKING HALF A PILL)
     Route: 048

REACTIONS (6)
  - Decreased appetite [Unknown]
  - Nocturia [Unknown]
  - Breath odour [Unknown]
  - Constipation [Unknown]
  - Drug ineffective [Unknown]
  - Wrong technique in product usage process [Unknown]
